FAERS Safety Report 10185173 (Version 1)
Quarter: 2014Q2

REPORT INFORMATION
  Report Type: Spontaneous
  Country: BR (occurrence: BR)
  Receive Date: 20140521
  Receipt Date: 20140521
  Transmission Date: 20141212
  Serious: Yes (Other)
  Sender: FDA-Public Use
  Company Number: PHHY2014BR059820

PATIENT
  Sex: Female

DRUGS (2)
  1. GALVUS MET [Suspect]
  2. FORASEQ [Suspect]

REACTIONS (1)
  - Diabetes mellitus [Unknown]
